FAERS Safety Report 4695363-6 (Version None)
Quarter: 2005Q2

REPORT INFORMATION
  Report Type: 
  Country: None (occurrence: None)
  Receive Date: 20050124
  Receipt Date: 20050124
  Transmission Date: 20051028
  Serious: No
  Sender: FDA-Public Use
  Company Number: None

PATIENT
  Sex: Female
  Weight: 74.8435 kg

DRUGS (1)
  1. PERGOLIDE MESYLATE [Suspect]
     Indication: RESTLESS LEGS SYNDROME

REACTIONS (1)
  - DRUG INEFFECTIVE [None]
